FAERS Safety Report 4925053-3 (Version None)
Quarter: 2006Q1

REPORT INFORMATION
  Report Type: 
  Country: None (occurrence: None)
  Receive Date: 20060222
  Receipt Date: 20060208
  Transmission Date: 20060701
  Serious: Yes (Death)
  Sender: FDA-Public Use
  Company Number: 2006S1000531

PATIENT
  Age: 60 Year
  Sex: Female
  Weight: 55 kg

DRUGS (11)
  1. REBIF [Suspect]
     Indication: MULTIPLE SCLEROSIS
     Dosage: 44 MCG; TIW; SUBCU
     Route: 058
  2. AMITRIPTYLINE HYDROCHLORIDE [Suspect]
     Dosage: 100 MG; HS; ORAL
     Route: 048
  3. CARISOPRODOL (WATSON) (350 MG) [Suspect]
     Dosage: QD; ORAL
     Route: 048
  4. DIAZEPAM [Suspect]
     Dosage: ORAL
     Route: 048
  5. MEPROBAMATE (WATSON) [Suspect]
     Dosage: ORAL
     Route: 048
  6. NORDIAZEPAM [Suspect]
     Dosage: PO
     Route: 048
  7. PARACETAMOL/HYDROCODONE BITARTRATE [Concomitant]
  8. ESOMEPRAZOLE MAGNESIUM [Concomitant]
  9. PROMETHAZINE HCL [Concomitant]
  10. GABAPENTIN [Concomitant]
  11. SERTRALINE [Concomitant]

REACTIONS (3)
  - ACCIDENTAL DEATH [None]
  - DRUG TOXICITY [None]
  - MULTIPLE DRUG OVERDOSE [None]
